FAERS Safety Report 6931460-X (Version None)
Quarter: 2010Q3

REPORT INFORMATION
  Report Type: 
  Country: None (occurrence: None)
  Receive Date: 20100819
  Receipt Date: 20100811
  Transmission Date: 20110219
  Serious: Yes (Hospitalization)
  Sender: FDA-Public Use
  Company Number: US-US-EMD SERONO, INC.-7014021

PATIENT
  Sex: Male

DRUGS (4)
  1. REBIF [Suspect]
     Indication: MULTIPLE SCLEROSIS
     Route: 058
     Dates: start: 20090223
  2. REBIF [Suspect]
     Route: 058
  3. UNSPECIFIED MEDICATION [Concomitant]
     Indication: HYPERTENSION
  4. UNSPECIFIED MEDICATION [Concomitant]
     Indication: BLOOD CHOLESTEROL INCREASED

REACTIONS (9)
  - AORTIC ANEURYSM [None]
  - ENTEROCOCCAL INFECTION [None]
  - ESCHERICHIA URINARY TRACT INFECTION [None]
  - PERIPHERAL ARTERY ANEURYSM [None]
  - PROSTATE CANCER [None]
  - PROTEUS INFECTION [None]
  - RENAL FAILURE [None]
  - SEPSIS [None]
  - URETERIC INJURY [None]
